FAERS Safety Report 7506167-0 (Version None)
Quarter: 2011Q2

REPORT INFORMATION
  Report Type: 
  Country: None (occurrence: None)
  Receive Date: 20110526
  Receipt Date: 20110523
  Transmission Date: 20111010
  Serious: Yes (Death, Other)
  Sender: FDA-Public Use
  Company Number: US-PFIZER INC-2010024795

PATIENT
  Sex: Male

DRUGS (2)
  1. CHANTIX [Suspect]
     Dosage: 1 MG CONTINUATION MONTH PACK
     Dates: start: 20080225, end: 20080302
  2. CHANTIX [Suspect]
     Indication: SMOKING CESSATION THERAPY
     Dosage: STARTING PACK
     Dates: start: 20080129, end: 20080225

REACTIONS (10)
  - MOOD ALTERED [None]
  - AGGRESSION [None]
  - AGITATION [None]
  - ABNORMAL BEHAVIOUR [None]
  - COMPLETED SUICIDE [None]
  - DEPRESSION [None]
  - ABNORMAL DREAMS [None]
  - DIABETES MELLITUS [None]
  - PALPITATIONS [None]
  - HOMICIDAL IDEATION [None]
